FAERS Safety Report 15205787 (Version 1)
Quarter: 2018Q3

REPORT INFORMATION
  Report Type: Spontaneous
  Country: US (occurrence: US)
  Receive Date: 20180727
  Receipt Date: 20180727
  Transmission Date: 20181010
  Serious: No
  Sender: FDA-Public Use
  Company Number: US-009507513-1201USA01600

PATIENT
  Age: 40 Year
  Sex: Female

DRUGS (5)
  1. EMTRICITABINE (+) TENOFOVIR DISOPROXIL FUMARATE [Suspect]
     Active Substance: EMTRICITABINE\TENOFOVIR DISOPROXIL
     Dosage: COURSE NUMBER 1 AND TOTAL DAILY DOSE 1(UNITS NOT PROVIDED)
     Route: 048
  2. ZIDOVUDINE. [Suspect]
     Active Substance: ZIDOVUDINE
     Dosage: COURSE NUMBER 2 AND TOTAL DAILY DOSE 1(UNITS NOT PROVIDED)
     Route: 042
  3. ISENTRESS [Suspect]
     Active Substance: RALTEGRAVIR POTASSIUM
     Dosage: COURSE NUMBER 1 AND TOTAL DAILY DOSE 2(UNITS NOT PROVIDED)
     Route: 048
  4. LOPINAVIR (+) RITONAVIR [Suspect]
     Active Substance: LOPINAVIR\RITONAVIR
     Dosage: COURSE NUMBER 1 AND TOTAL DAILY DOSE 4(UNITS NOT PROVIDED)
     Route: 048
  5. ZIDOVUDINE. [Suspect]
     Active Substance: ZIDOVUDINE
     Dosage: COURSE NUMBER 1 AND TOTAL DAILY DOSE 2(UNITS NOT PROVIDED)
     Route: 042

REACTIONS (2)
  - No adverse event [Unknown]
  - Maternal exposure during pregnancy [Recovered/Resolved]
